FAERS Safety Report 6186835-6 (Version None)
Quarter: 2009Q2

REPORT INFORMATION
  Report Type: 
  Country: None (occurrence: None)
  Receive Date: 20090512
  Receipt Date: 20090507
  Transmission Date: 20091009
  Serious: Yes (Hospitalization, Other)
  Sender: FDA-Public Use
  Company Number: TW-ROXANE LABORATORIES, INC.-2009-RO-00465RO

PATIENT
  Age: 56 Year
  Sex: Female

DRUGS (3)
  1. ZOLPIDEM [Suspect]
     Indication: SUICIDE ATTEMPT
     Dosage: 3000MG
     Route: 048
  2. METFORMIN HCL [Suspect]
     Indication: SUICIDE ATTEMPT
     Dosage: 30000MG
     Route: 048
  3. DOPAMINE HCL [Concomitant]
     Indication: HYPOTENSION

REACTIONS (7)
  - AGITATION [None]
  - HYPOTENSION [None]
  - HYPOTHERMIA [None]
  - LACTIC ACIDOSIS [None]
  - METABOLIC ACIDOSIS [None]
  - MULTIPLE DRUG OVERDOSE INTENTIONAL [None]
  - RESPIRATORY ACIDOSIS [None]
